FAERS Safety Report 8448467-6 (Version None)
Quarter: 2012Q2

REPORT INFORMATION
  Report Type: 
  Country: None (occurrence: None)
  Receive Date: 20120619
  Receipt Date: 20120613
  Transmission Date: 20120825
  Serious: Yes (Other)
  Sender: FDA-Public Use
  Company Number: RU-BAYER-2012-032149

PATIENT
  Age: 30 Year
  Sex: Female

DRUGS (1)
  1. ESTRADIOL VALERATE/DIENOGEST [Suspect]
     Indication: ORAL CONTRACEPTION
     Dosage: 1 DF, QD
     Route: 048
     Dates: start: 20110701, end: 20120201

REACTIONS (4)
  - UTERINE HYPERTONUS [None]
  - PREGNANCY ON ORAL CONTRACEPTIVE [None]
  - VOMITING [None]
  - WITHDRAWAL BLEED [None]
